FAERS Safety Report 18618117 (Version 2)
Quarter: 2021Q1

REPORT INFORMATION
  Report Type: Report from Study
  Country: JP (occurrence: JP)
  Receive Date: 20201215
  Receipt Date: 20210201
  Transmission Date: 20210419
  Serious: Yes (Other)
  Sender: FDA-Public Use
  Company Number: JP-AMGEN-JPNSP2019163335

PATIENT
  Age: 83 Year
  Sex: Female

DRUGS (16)
  1. MAGMITT [Concomitant]
     Active Substance: MAGNESIUM OXIDE
     Indication: CONSTIPATION
     Dosage: UNK
     Route: 048
  2. ROMIPLOSTIM [Suspect]
     Active Substance: ROMIPLOSTIM
     Dosage: 210 MICROGRAM
     Route: 058
     Dates: start: 20190802, end: 20190802
  3. ZOPICLONE [Concomitant]
     Active Substance: ZOPICLONE
     Indication: INSOMNIA
     Dosage: UNK
     Route: 048
  4. ROMIPLOSTIM [Suspect]
     Active Substance: ROMIPLOSTIM
     Dosage: 43 MICROGRAM
     Route: 058
     Dates: start: 20190823, end: 20190823
  5. BERIZYM [CELLULASE;DIASTASE;LIPASE;PANCREATIN] [Concomitant]
     Indication: IRRITABLE BOWEL SYNDROME
     Dosage: UNK
     Route: 048
  6. MEILAX [Concomitant]
     Active Substance: ETHYL LOFLAZEPATE
     Indication: INSOMNIA
     Dosage: UNK
     Route: 048
  7. NEORAL [Concomitant]
     Active Substance: CYCLOSPORINE
     Indication: APLASTIC ANAEMIA
     Dosage: UNK
     Route: 048
  8. LIXIANA [Concomitant]
     Active Substance: EDOXABAN TOSYLATE
     Indication: TACHYARRHYTHMIA
     Dosage: UNK
     Route: 048
  9. ROMIPLOSTIM [Suspect]
     Active Substance: ROMIPLOSTIM
     Indication: APLASTIC ANAEMIA
     Dosage: 430 MICROGRAM
     Route: 058
     Dates: start: 20190726, end: 20190726
  10. REVOLADE [Concomitant]
     Active Substance: ELTROMBOPAG OLAMINE
     Indication: APLASTIC ANAEMIA
     Dosage: UNK
     Route: 048
  11. COLONEL [Concomitant]
     Active Substance: CALCIUM POLYCARBOPHIL
     Indication: IRRITABLE BOWEL SYNDROME
     Dosage: UNK
     Route: 048
  12. MARZULENE [AZULENE SODIUM SULFONATE;LEVOGLUTAMIDE] [Concomitant]
     Indication: IRRITABLE BOWEL SYNDROME
     Dosage: UNK
     Route: 048
  13. CIBENOL [Concomitant]
     Active Substance: CIFENLINE
     Indication: TACHYARRHYTHMIA
     Dosage: UNK
     Route: 048
  14. FEBURIC [Concomitant]
     Active Substance: FEBUXOSTAT
     Indication: HYPERURICAEMIA
     Dosage: UNK
     Route: 048
  15. MARZULENE [AZULENE SODIUM SULFONATE;LEVOGLUTAMIDE] [Concomitant]
     Dosage: UNK
     Route: 048
  16. SENNOSIDE [SENNOSIDE A+B] [Concomitant]
     Active Substance: SENNOSIDES A AND B
     Indication: CONSTIPATION
     Dosage: UNK
     Route: 048

REACTIONS (4)
  - Adrenal insufficiency [Recovered/Resolved]
  - Zinc deficiency [Recovering/Resolving]
  - Platelet count increased [Recovered/Resolved]
  - Iron deficiency [Recovering/Resolving]

NARRATIVE: CASE EVENT DATE: 20190805
